FAERS Safety Report 8399721-8 (Version None)
Quarter: 2012Q2

REPORT INFORMATION
  Report Type: 
  Country: None (occurrence: None)
  Receive Date: 20120531
  Receipt Date: 20120518
  Transmission Date: 20120825
  Serious: Yes (Hospitalization, Other)
  Sender: FDA-Public Use
  Company Number: AU-MYLANLABS-2012S1010143

PATIENT
  Sex: Male

DRUGS (1)
  1. PIAX [Suspect]
     Route: 048

REACTIONS (2)
  - GASTRIC HAEMORRHAGE [None]
  - PRODUCT SUBSTITUTION ISSUE [None]
